FAERS Safety Report 5515720-5 (Version None)
Quarter: 2007Q4

REPORT INFORMATION
  Report Type: 
  Country: None (occurrence: None)
  Receive Date: 20071113
  Receipt Date: 20070919
  Transmission Date: 20080405
  Serious: No
  Sender: FDA-Public Use
  Company Number: A0682475A

PATIENT
  Age: 52 Year
  Sex: Female

DRUGS (2)
  1. COREG [Suspect]
     Dosage: 6.25MG UNKNOWN
  2. STEROIDS [Concomitant]

REACTIONS (5)
  - DIZZINESS [None]
  - FLUID RETENTION [None]
  - VERTIGO [None]
  - WEIGHT INCREASED [None]
  - WEIGHT LOSS POOR [None]
